FAERS Safety Report 8532842-5 (Version None)
Quarter: 2012Q3

REPORT INFORMATION
  Report Type: 
  Country: None (occurrence: None)
  Receive Date: 20120705
  Receipt Date: 20120702
  Transmission Date: 20120928
  Serious: Yes (Other)
  Sender: FDA-Public Use
  Company Number: 2012031471

PATIENT
  Sex: Female

DRUGS (1)
  1. PRIVIGEN [Suspect]

REACTIONS (2)
  - EYE HAEMORRHAGE [None]
  - PAIN [None]
